FAERS Safety Report 4946339-2 (Version None)
Quarter: 2006Q1

REPORT INFORMATION
  Report Type: 
  Country: None (occurrence: None)
  Receive Date: 20060316
  Receipt Date: 20060316
  Transmission Date: 20060701
  Serious: Yes (Hospitalization)
  Sender: FDA-Public Use
  Company Number: None

PATIENT
  Age: 47 Year
  Sex: Male
  Weight: 71.6683 kg

DRUGS (3)
  1. MYCOPHENOLATE MOFETIL [Suspect]
     Indication: MULTIPLE SCLEROSIS
     Dosage: 1 GRAM BID PO
     Route: 048
  2. AVONEX [Concomitant]
  3. TRAZODONE HCL [Concomitant]

REACTIONS (6)
  - ABDOMINAL PAIN LOWER [None]
  - ABSCESS INTESTINAL [None]
  - ANOREXIA [None]
  - APPENDICITIS PERFORATED [None]
  - MASS [None]
  - WEIGHT DECREASED [None]
